FAERS Safety Report 7534710-4 (Version None)
Quarter: 2011Q2

REPORT INFORMATION
  Report Type: 
  Country: None (occurrence: None)
  Receive Date: 20110609
  Receipt Date: 20110518
  Transmission Date: 20111010
  Serious: Yes (Other)
  Sender: FDA-Public Use
  Company Number: PHHY2011US43536

PATIENT
  Sex: Male

DRUGS (1)
  1. CLOZAPINE [Suspect]
     Dosage: 100 MG, HS
     Dates: start: 20110323

REACTIONS (6)
  - PIGMENTATION DISORDER [None]
  - ABSCESS [None]
  - MUSCULOSKELETAL STIFFNESS [None]
  - DERMATITIS BULLOUS [None]
  - INFECTION [None]
  - OEDEMA PERIPHERAL [None]
